FAERS Safety Report 5704453-8 (Version None)
Quarter: 2008Q2

REPORT INFORMATION
  Report Type: 
  Country: None (occurrence: None)
  Receive Date: 20080411
  Receipt Date: 20080411
  Transmission Date: 20081010
  Serious: Yes (Other)
  Sender: FDA-Public Use
  Company Number: None

PATIENT
  Sex: Female
  Weight: 79.3795 kg

DRUGS (1)
  1. CRESTOR [Suspect]
     Indication: BLOOD CHOLESTEROL INCREASED
     Dosage: ONE TABLET DAILY PO
     Route: 048
     Dates: start: 20080202, end: 20080326

REACTIONS (4)
  - ASTHENIA [None]
  - HEADACHE [None]
  - MYALGIA [None]
  - OEDEMA PERIPHERAL [None]
